FAERS Safety Report 19093413 (Version 1)
Quarter: 2021Q2

REPORT INFORMATION
  Report Type: Spontaneous
  Country: US (occurrence: US)
  Receive Date: 20210405
  Receipt Date: 20210405
  Transmission Date: 20210717
  Serious: No
  Sender: FDA-Public Use
  Company Number: US-BAUSCH-BL-2021-007363

PATIENT
  Sex: Female

DRUGS (2)
  1. BRYHALI [Suspect]
     Active Substance: HALOBETASOL PROPIONATE
     Indication: ALOPECIA
     Route: 065
     Dates: start: 2021, end: 2021
  2. BRYHALI [Suspect]
     Active Substance: HALOBETASOL PROPIONATE
     Indication: OFF LABEL USE

REACTIONS (4)
  - Condition aggravated [Unknown]
  - Off label use [Unknown]
  - Alopecia [Unknown]
  - Product prescribing error [Unknown]

NARRATIVE: CASE EVENT DATE: 2021
